FAERS Safety Report 10592631 (Version 2)
Quarter: 2014Q4

REPORT INFORMATION
  Report Type: Spontaneous
  Country: AT (occurrence: AT)
  Receive Date: 20141119
  Receipt Date: 20141219
  Transmission Date: 20150529
  Serious: Yes (Other)
  Sender: FDA-Public Use
  Company Number: AT-BAYER-2014-166829

PATIENT
  Age: 76 Year
  Sex: Male

DRUGS (3)
  1. STIVARGA [Suspect]
     Active Substance: REGORAFENIB
     Indication: RECTAL ADENOCARCINOMA
     Dosage: 120 MG, UNK
     Dates: start: 2014, end: 2014
  2. STIVARGA [Suspect]
     Active Substance: REGORAFENIB
     Indication: RECTAL ADENOCARCINOMA
     Dosage: UNK
     Dates: start: 201402
  3. STIVARGA [Suspect]
     Active Substance: REGORAFENIB
     Indication: RECTAL ADENOCARCINOMA
     Dosage: 80 MG, UNK
     Dates: start: 2014

REACTIONS (4)
  - Fatigue [None]
  - Rectal adenocarcinoma [None]
  - Palmar-plantar erythrodysaesthesia syndrome [None]
  - Drug ineffective [None]
